FAERS Safety Report 25817265 (Version 1)
Quarter: 2025Q3

REPORT INFORMATION
  Report Type: Spontaneous
  Country: US (occurrence: None)
  Receive Date: 20250918
  Receipt Date: 20250918
  Transmission Date: 20251021
  Serious: Yes (Other)
  Sender: INFORLIFE
  Company Number: US-INFO-20250230

PATIENT
  Age: 66 Year
  Sex: Male

DRUGS (5)
  1. ZOLEDRONIC ACID [Suspect]
     Active Substance: ZOLEDRONIC ACID
     Dates: start: 20250819, end: 20250819
  2. LOSARTAN [Concomitant]
     Active Substance: LOSARTAN
  3. VICODIN [Concomitant]
     Active Substance: ACETAMINOPHEN\HYDROCODONE BITARTRATE
  4. DAROLUTAMIDE [Concomitant]
     Active Substance: DAROLUTAMIDE
  5. RELUGOLIX [Concomitant]
     Active Substance: RELUGOLIX

REACTIONS (5)
  - Ocular discomfort [Unknown]
  - Visual impairment [Unknown]
  - Eye swelling [Unknown]
  - Eyelid ptosis [Unknown]
  - Diplopia [Unknown]

NARRATIVE: CASE EVENT DATE: 20250824
